FAERS Safety Report 8583050-3 (Version None)
Quarter: 2012Q3

REPORT INFORMATION
  Report Type: 
  Country: None (occurrence: None)
  Receive Date: 20120809
  Receipt Date: 20120803
  Transmission Date: 20120928
  Serious: Yes (Hospitalization)
  Sender: FDA-Public Use
  Company Number: CA-US-EMD SERONO, INC.-7124490

PATIENT
  Sex: Female

DRUGS (5)
  1. VENTOLIN [Concomitant]
     Indication: PRODUCT USED FOR UNKNOWN INDICATION
  2. SYNTHROID [Concomitant]
     Indication: PRODUCT USED FOR UNKNOWN INDICATION
  3. FLOVENT [Concomitant]
     Indication: PRODUCT USED FOR UNKNOWN INDICATION
  4. SAIZEN [Suspect]
     Indication: TURNER'S SYNDROME
     Route: 058
     Dates: start: 20120215, end: 20120510
  5. SYNTHROID [Concomitant]
     Dosage: DOSE DECREASED

REACTIONS (11)
  - COUGH [None]
  - HEADACHE [None]
  - INTRACRANIAL PRESSURE INCREASED [None]
  - VOMITING [None]
  - INJECTION SITE HAEMATOMA [None]
  - INCREASED UPPER AIRWAY SECRETION [None]
  - INJECTION SITE PAIN [None]
  - ECZEMA [None]
  - NASOPHARYNGITIS [None]
  - SINUSITIS [None]
  - INJECTION SITE HAEMORRHAGE [None]
